FAERS Safety Report 4705387-8 (Version None)
Quarter: 2005Q3

REPORT INFORMATION
  Report Type: 
  Country: None (occurrence: None)
  Receive Date: 20050701
  Receipt Date: 20050623
  Transmission Date: 20060218
  Serious: Yes (Hospitalization)
  Sender: FDA-Public Use
  Company Number: BR-GLAXOSMITHKLINE-A0564167A

PATIENT
  Age: 46 Year
  Sex: Female
  Weight: 50 kg

DRUGS (7)
  1. SERETIDE [Suspect]
     Indication: ASTHMA
     Route: 055
     Dates: start: 20011024
  2. ENALAPRIL MALEATE [Concomitant]
     Route: 048
  3. MODURETIC 5-50 [Concomitant]
  4. CLONAZEPAM [Concomitant]
     Dosage: .5TAB PER DAY
     Route: 048
  5. VITAMIN B COMPLEX CAP [Concomitant]
  6. PAROXETINE HCL [Concomitant]
     Route: 048
  7. SULPIRIDE [Concomitant]
     Route: 048

REACTIONS (3)
  - AMNESIA [None]
  - DYSPNOEA [None]
  - HYPERTENSION [None]
